FAERS Safety Report 5557208-1 (Version None)
Quarter: 2007Q4

REPORT INFORMATION
  Report Type: 
  Country: None (occurrence: None)
  Receive Date: 20071211
  Receipt Date: 20071211
  Transmission Date: 20080405
  Serious: No
  Sender: FDA-Public Use
  Company Number: None

PATIENT
  Age: 73 Year
  Sex: Female
  Weight: 71 kg

DRUGS (2)
  1. MEPERIDINE HCL [Suspect]
     Indication: CONVULSION
     Dosage: PO
     Route: 048
     Dates: start: 20070808, end: 20070808
  2. MIDAZOLAM HCL [Concomitant]

REACTIONS (1)
  - CYANOSIS [None]
